FAERS Safety Report 6956679-3 (Version None)
Quarter: 2010Q3

REPORT INFORMATION
  Report Type: 
  Country: None (occurrence: None)
  Receive Date: 20100830
  Receipt Date: 20100825
  Transmission Date: 20110219
  Serious: Yes (Hospitalization)
  Sender: FDA-Public Use
  Company Number: IT-ABBOTT-10P-083-0663509-00

PATIENT
  Sex: Female

DRUGS (3)
  1. AKINETON [Suspect]
     Indication: SELF INJURIOUS BEHAVIOUR
     Dosage: 120 MG
     Route: 048
     Dates: start: 20100611, end: 20100611
  2. DELORAZEPAM [Suspect]
     Indication: SELF INJURIOUS BEHAVIOUR
     Dosage: 20 MG
     Route: 048
     Dates: start: 20100611, end: 20100611
  3. HALDOL [Suspect]
     Indication: SELF INJURIOUS BEHAVIOUR
     Dosage: 10 MG, 2MG/ML
     Route: 048
     Dates: start: 20100611, end: 20100611

REACTIONS (1)
  - SELF INJURIOUS BEHAVIOUR [None]
